FAERS Safety Report 6305067-1 (Version None)
Quarter: 2009Q3

REPORT INFORMATION
  Report Type: 
  Country: None (occurrence: None)
  Receive Date: 20090811
  Receipt Date: 20090630
  Transmission Date: 20100115
  Serious: Yes (Other)
  Sender: FDA-Public Use
  Company Number: BR-PFIZER INC-2009234958

PATIENT
  Age: 83 Year

DRUGS (9)
  1. VIBRAMICINA [Suspect]
     Dosage: 100 MG, 1X/DAY
     Route: 048
     Dates: start: 20090627
  2. ATACAND [Concomitant]
     Dosage: UNK
  3. MODURETIC 5-50 [Concomitant]
     Dosage: UNK
  4. ANCORON [Concomitant]
     Dosage: UNK
  5. AMLODIPINE [Concomitant]
     Dosage: UNK
  6. AMARYL [Concomitant]
     Dosage: UNK
  7. DALMADORM ^HOFFMAN^ [Concomitant]
     Dosage: UNK
  8. PARACETAMOL [Concomitant]
     Dosage: UNK
  9. PROCTYL [Concomitant]
     Dosage: UNK

REACTIONS (1)
  - ANAL HAEMORRHAGE [None]
